FAERS Safety Report 12565704 (Version 29)
Quarter: 2021Q2

REPORT INFORMATION
  Report Type: Spontaneous
  Country: US (occurrence: US)
  Receive Date: 20160718
  Receipt Date: 20210526
  Transmission Date: 20210716
  Serious: Yes (Other)
  Sender: FDA-Public Use
  Company Number: US-PFIZER INC-2016335880

PATIENT
  Age: 65 Year
  Sex: Female
  Weight: 64 kg

DRUGS (18)
  1. IBRANCE [Suspect]
     Active Substance: PALBOCICLIB
     Dosage: 125 MG, 1X/DAY
     Route: 048
  2. CALM [Concomitant]
     Active Substance: TRIFLUOPERAZINE HYDROCHLORIDE
     Dosage: UNK, DAILY (1/2 TEASPOON PER DAY 8 OZ WATER)
     Dates: start: 201604
  3. LETROZOLE. [Concomitant]
     Active Substance: LETROZOLE
     Dosage: UNK
     Route: 048
  4. ALPRAZOLAM. [Concomitant]
     Active Substance: ALPRAZOLAM
     Indication: ANXIETY
     Dosage: 1 MG, AS NEEDED
  5. IBRANCE [Suspect]
     Active Substance: PALBOCICLIB
     Dosage: 125 MG
  6. ATIVAN [Concomitant]
     Active Substance: LORAZEPAM
     Indication: ANXIETY
     Dosage: 1 MG, 2X/DAY
     Dates: start: 201605
  7. IBRANCE [Suspect]
     Active Substance: PALBOCICLIB
     Dosage: 125 MG, CYCLIC (ONCE A DAY FOR 21 DAYS)
     Route: 048
  8. IBRANCE [Suspect]
     Active Substance: PALBOCICLIB
     Dosage: 100 MG, CYCLIC (21 DAYS ON AND OFF FOR 7 DAYS)
     Dates: start: 2016
  9. LORAZEPAM. [Concomitant]
     Active Substance: LORAZEPAM
     Indication: ANXIETY
     Dosage: 1 MG, AS NEEDED (3 TIMES A DAY AS NEEDED)
     Route: 048
  10. IBRANCE [Suspect]
     Active Substance: PALBOCICLIB
     Indication: BREAST CANCER METASTATIC
     Dosage: 125 MG, CYCLIC (ONCE A DAY FOR 21 DAYS)
     Route: 048
     Dates: start: 20160622
  11. MIDRIN [Concomitant]
     Active Substance: ACETAMINOPHEN\DICHLORALPHENAZONE\ISOMETHEPTENE
     Indication: MIGRAINE
     Dosage: 1 DF, AS NEEDED
     Dates: start: 1993
  12. BOTOX [Concomitant]
     Active Substance: ONABOTULINUMTOXINA
     Indication: MIGRAINE
     Dosage: UNK
  13. IBRANCE [Suspect]
     Active Substance: PALBOCICLIB
     Dosage: 100 MG
  14. CALCIUM AND VITAMIN D [Concomitant]
     Active Substance: CALCIUM\VITAMIN D
     Dosage: UNK
     Dates: start: 201605
  15. IBRANCE [Suspect]
     Active Substance: PALBOCICLIB
     Indication: BREAST CANCER FEMALE
     Dosage: UNK
     Dates: start: 20170612
  16. LETROZOLE. [Concomitant]
     Active Substance: LETROZOLE
     Indication: BREAST CANCER METASTATIC
     Dosage: 2.5 MG, 1X/DAY
     Route: 048
     Dates: start: 20160515
  17. IBRANCE [Suspect]
     Active Substance: PALBOCICLIB
     Dosage: 125 MG
  18. PANTOPRAZOLE [Concomitant]
     Active Substance: PANTOPRAZOLE
     Indication: HYPERCHLORHYDRIA
     Dosage: 20 MG, 1X/DAY (ONCE IN MORNING)
     Route: 048

REACTIONS (48)
  - Neoplasm progression [Unknown]
  - Sunburn [Recovered/Resolved]
  - Contusion [Recovered/Resolved]
  - Malaise [Unknown]
  - Abdominal discomfort [Unknown]
  - Memory impairment [Unknown]
  - Fatigue [Recovering/Resolving]
  - Feeling abnormal [Recovered/Resolved]
  - Eructation [Unknown]
  - Feeling cold [Recovering/Resolving]
  - Amnesia [Unknown]
  - Abdominal pain upper [Unknown]
  - Loss of consciousness [Recovered/Resolved]
  - Enteritis infectious [Unknown]
  - Gastrointestinal pain [Unknown]
  - Anxiety [Unknown]
  - Dehydration [Unknown]
  - Diarrhoea [Recovering/Resolving]
  - Constipation [Recovering/Resolving]
  - Cluster headache [Recovering/Resolving]
  - Carbon monoxide poisoning [Unknown]
  - Asthenia [Recovered/Resolved]
  - Chest pain [Recovered/Resolved]
  - Skin swelling [Recovering/Resolving]
  - Immune system disorder [Unknown]
  - Gallbladder disorder [Unknown]
  - Fall [Recovered/Resolved]
  - Hiatus hernia [Unknown]
  - Throat irritation [Unknown]
  - Animal bite [Unknown]
  - Anxiety [Unknown]
  - Skin abrasion [Recovered/Resolved]
  - Gastrointestinal disorder [Unknown]
  - White blood cell count decreased [Not Recovered/Not Resolved]
  - Acne [Unknown]
  - Diverticulitis [Not Recovered/Not Resolved]
  - Arthralgia [Recovered/Resolved]
  - Pain in extremity [Recovered/Resolved]
  - Epistaxis [Recovered/Resolved]
  - Stress [Unknown]
  - Disturbance in attention [Unknown]
  - Migraine [Unknown]
  - Disease recurrence [Unknown]
  - Post procedural infection [Unknown]
  - Pain [Unknown]
  - Head injury [Recovered/Resolved]
  - Swelling face [Recovered/Resolved]
  - Back pain [Unknown]

NARRATIVE: CASE EVENT DATE: 20160703
